FAERS Safety Report 13139399 (Version 3)
Quarter: 2018Q1

REPORT INFORMATION
  Report Type: Spontaneous
  Country: FR (occurrence: FR)
  Receive Date: 20170123
  Receipt Date: 20180321
  Transmission Date: 20180508
  Serious: Yes (Hospitalization)
  Sender: FDA-Public Use
  Company Number: FR-PFIZER INC-2017023080

PATIENT
  Age: 61 Year
  Sex: Female

DRUGS (2)
  1. ENBREL [Suspect]
     Active Substance: ETANERCEPT
     Indication: PSORIATIC ARTHROPATHY
     Dosage: UNK (4 INJECTIONS)
     Route: 058
     Dates: start: 201412, end: 201501
  2. METHOTREXATE SODIUM. [Suspect]
     Active Substance: METHOTREXATE SODIUM
     Indication: PSORIATIC ARTHROPATHY
     Dosage: UNK
     Route: 048
     Dates: start: 2011, end: 201501

REACTIONS (4)
  - Peripheral nerve injury [Recovered/Resolved]
  - Pustular psoriasis [Recovered/Resolved]
  - Cutaneous vasculitis [Not Recovered/Not Resolved]
  - Polyarteritis nodosa [Recovered/Resolved]

NARRATIVE: CASE EVENT DATE: 201501
